FAERS Safety Report 18527395 (Version 1)
Quarter: 2020Q4

REPORT INFORMATION
  Report Type: Spontaneous
  Country: US (occurrence: US)
  Receive Date: 20201120
  Receipt Date: 20201120
  Transmission Date: 20210114
  Serious: Yes (Other)
  Sender: FDA-Public Use
  Company Number: None

PATIENT
  Age: 46 Year
  Sex: Female
  Weight: 102.15 kg

DRUGS (10)
  1. TIZANIDINE. [Concomitant]
     Active Substance: TIZANIDINE
  2. OMEGA [Concomitant]
  3. BENZOCAINE. [Concomitant]
     Active Substance: BENZOCAINE
  4. BUTALBATAL [Concomitant]
  5. PROBIOTIC [Concomitant]
     Active Substance: PROBIOTICS NOS
  6. MAGNESIUM [Concomitant]
     Active Substance: MAGNESIUM
  7. PHENTERMINE. [Concomitant]
     Active Substance: PHENTERMINE
  8. MULTIVITAMIN [Concomitant]
     Active Substance: VITAMINS
  9. UBRELVY [Suspect]
     Active Substance: UBROGEPANT
     Indication: MIGRAINE
     Route: 048
     Dates: start: 20201118, end: 20201119
  10. TOPAMAX [Concomitant]
     Active Substance: TOPIRAMATE

REACTIONS (4)
  - Amnesia [None]
  - Headache [None]
  - Fatigue [None]
  - Dysgraphia [None]

NARRATIVE: CASE EVENT DATE: 20201119
